FAERS Safety Report 18050502 (Version 2)
Quarter: 2020Q3

REPORT INFORMATION
  Report Type: Spontaneous
  Country: US (occurrence: US)
  Receive Date: 20200721
  Receipt Date: 20200901
  Transmission Date: 20201103
  Serious: Yes (Death, Hospitalization, Other)
  Sender: FDA-Public Use
  Company Number: US-PURDUE-USA-2020-0156554

PATIENT
  Age: 69 Year
  Sex: Male

DRUGS (16)
  1. VICODIN [Suspect]
     Active Substance: ACETAMINOPHEN\HYDROCODONE BITARTRATE
     Indication: SPINAL OPERATION
     Dosage: 10 MG, QID
     Route: 065
     Dates: start: 2009
  2. IPRATROPIUM/ALBUTEROL [Concomitant]
     Active Substance: ALBUTEROL\IPRATROPIUM
     Indication: PRODUCT USED FOR UNKNOWN INDICATION
     Dosage: 3.5 MG/3 ML, UNK
     Route: 055
  3. ALBUTEROL SULFATE. [Concomitant]
     Active Substance: ALBUTEROL SULFATE
     Indication: PRODUCT USED FOR UNKNOWN INDICATION
     Dosage: 2 MG, TID
     Route: 048
  4. PERCOCET                           /00446701/ [Suspect]
     Active Substance: ACETAMINOPHEN\OXYCODONE HYDROCHLORIDE\OXYCODONE TEREPHTHALATE
     Indication: RIB FRACTURE
     Dosage: UNKNOWN
     Route: 048
  5. HYDROCODONE BITARTRATE AND ACETAMINOPHEN [Suspect]
     Active Substance: ACETAMINOPHEN\HYDROCODONE BITARTRATE
     Indication: PAIN
     Dosage: 10 MG, QID
     Route: 048
     Dates: start: 2009
  6. HYDROCODONE BITARTRATE AND ACETAMINOPHEN [Suspect]
     Active Substance: ACETAMINOPHEN\HYDROCODONE BITARTRATE
     Indication: SPINAL OPERATION
     Dosage: 335 MG, QID
     Route: 048
     Dates: start: 2009
  7. OXYCONTIN [Suspect]
     Active Substance: OXYCODONE HYDROCHLORIDE
     Indication: RIB FRACTURE
     Dosage: UNKNOWN
     Route: 048
  8. VENTOLIN [Concomitant]
     Active Substance: ALBUTEROL SULFATE
     Indication: PRODUCT USED FOR UNKNOWN INDICATION
     Dosage: 2 PUFF, Q4? 6H PRN
     Route: 055
  9. SPIRONOLACTONE. [Concomitant]
     Active Substance: SPIRONOLACTONE
     Indication: PRODUCT USED FOR UNKNOWN INDICATION
     Dosage: 25 MG, DAILY
     Route: 048
  10. CARVEDILOL. [Concomitant]
     Active Substance: CARVEDILOL
     Indication: PRODUCT USED FOR UNKNOWN INDICATION
     Dosage: 3.125 MG, BID
     Route: 048
  11. LISINOPRIL. [Concomitant]
     Active Substance: LISINOPRIL
     Indication: PRODUCT USED FOR UNKNOWN INDICATION
     Dosage: 2.5 MG, DAILY
     Route: 048
  12. FUROSEMIDE. [Concomitant]
     Active Substance: FUROSEMIDE
     Indication: PRODUCT USED FOR UNKNOWN INDICATION
     Dosage: 40 MG, DAILY
     Route: 048
  13. SPIRIVA [Concomitant]
     Active Substance: TIOTROPIUM BROMIDE MONOHYDRATE
     Indication: PRODUCT USED FOR UNKNOWN INDICATION
     Dosage: 18 MCG, UNK
     Route: 055
  14. OXYCODONE HCL TABLETS (RHODES 91?490) [Suspect]
     Active Substance: OXYCODONE HYDROCHLORIDE
     Indication: PAIN
     Dosage: 5 MG, UNK
     Route: 048
  15. HYDROMORPHONE HCL (SIMILAR TO 19?892) [Suspect]
     Active Substance: HYDROMORPHONE HYDROCHLORIDE
     Indication: PRODUCT USED FOR UNKNOWN INDICATION
     Dosage: UNKNOWN
     Route: 048
  16. ASPIRIN. [Concomitant]
     Active Substance: ASPIRIN
     Indication: PRODUCT USED FOR UNKNOWN INDICATION
     Dosage: 81 MG, DAILY
     Route: 048

REACTIONS (32)
  - Acute kidney injury [Fatal]
  - Aneurysm [Unknown]
  - Rib fracture [Unknown]
  - Peripheral swelling [Unknown]
  - Intervertebral disc displacement [Unknown]
  - Pain in extremity [Unknown]
  - Weight decreased [Unknown]
  - Sacroiliitis [Unknown]
  - Arthralgia [Unknown]
  - Abdominal pain lower [Unknown]
  - Delirium [Fatal]
  - Congestive cardiomyopathy [Unknown]
  - Lung perforation [Unknown]
  - Chronic obstructive pulmonary disease [Unknown]
  - Pneumonia [Unknown]
  - Unevaluable event [Unknown]
  - Spinal osteoarthritis [Unknown]
  - Arthritis [Unknown]
  - Musculoskeletal chest pain [Unknown]
  - Drug dependence [Unknown]
  - Hyperammonaemia [Fatal]
  - Arrhythmia [Unknown]
  - Hyperkalaemia [Fatal]
  - Aneurysm repair [Unknown]
  - Myocardial infarction [Unknown]
  - Intervertebral disc protrusion [Unknown]
  - Coronary artery disease [Unknown]
  - Fall [Unknown]
  - Loss of personal independence in daily activities [Unknown]
  - Hypertension [Unknown]
  - Back pain [Unknown]
  - Concussion [Unknown]

NARRATIVE: CASE EVENT DATE: 201812
